FAERS Safety Report 8381298-4 (Version None)
Quarter: 2012Q2

REPORT INFORMATION
  Report Type: 
  Country: None (occurrence: None)
  Receive Date: 20120523
  Receipt Date: 20120521
  Transmission Date: 20120825
  Serious: No
  Sender: FDA-Public Use
  Company Number: US-TEVA-339296USA

PATIENT
  Sex: Female
  Weight: 81.72 kg

DRUGS (4)
  1. TRAMADOL HYDROCHLORIDE [Concomitant]
     Indication: TOOTHACHE
  2. MICROGESTIN FE 1/20 [Concomitant]
     Indication: CONTRACEPTION
  3. PLAN B ONE-STEP [Suspect]
     Indication: POST COITAL CONTRACEPTION
     Dosage: 1.5 MILLIGRAM;
     Route: 048
     Dates: start: 20120513, end: 20120513
  4. ANTIBIOTICS [Concomitant]
     Indication: TOOTHACHE

REACTIONS (1)
  - MENSTRUATION IRREGULAR [None]
